FAERS Safety Report 11215512 (Version 3)
Quarter: 2015Q4

REPORT INFORMATION
  Report Type: Report from Study
  Country: US (occurrence: US)
  Receive Date: 20150624
  Receipt Date: 20151020
  Transmission Date: 20160304
  Serious: No
  Sender: FDA-Public Use
  Company Number: US-AMGEN-USASL2015059375

PATIENT
  Age: 51 Year
  Sex: Female
  Weight: 96.6 kg

DRUGS (1)
  1. ENBREL [Suspect]
     Active Substance: ETANERCEPT
     Indication: RHEUMATOID ARTHRITIS
     Dosage: 50 MG, QWK
     Route: 058
     Dates: start: 20150514, end: 201506

REACTIONS (9)
  - Local swelling [Unknown]
  - Drug hypersensitivity [Unknown]
  - Erythema [Unknown]
  - Back pain [Unknown]
  - Unevaluable event [Unknown]
  - Swelling [Unknown]
  - Generalised oedema [Recovering/Resolving]
  - Swelling face [Unknown]
  - Facial pain [Unknown]

NARRATIVE: CASE EVENT DATE: 2015
